FAERS Safety Report 21226288 (Version 1)
Quarter: 2022Q3

REPORT INFORMATION
  Report Type: Spontaneous
  Country: US (occurrence: US)
  Receive Date: 20220818
  Receipt Date: 20220818
  Transmission Date: 20221027
  Serious: No
  Sender: FDA-Public Use
  Company Number: US-CIPLA LTD.-2022US00567

PATIENT
  Sex: Male

DRUGS (2)
  1. ALENDRONATE [Suspect]
     Active Substance: ALENDRONATE SODIUM
     Indication: Osteoporosis
     Dosage: 70 MILLIGRAM, ONCE A WEEK
     Route: 048
     Dates: start: 20201017, end: 20211106
  2. ATORVASTATIN [Concomitant]
     Active Substance: ATORVASTATIN
     Indication: Product used for unknown indication
     Dosage: 80 MILLIGRAM, QD (15 YEARS AGO)
     Route: 065

REACTIONS (21)
  - Salivary hypersecretion [Not Recovered/Not Resolved]
  - Pyrexia [Not Recovered/Not Resolved]
  - Night sweats [Not Recovered/Not Resolved]
  - Taste disorder [Not Recovered/Not Resolved]
  - Parosmia [Not Recovered/Not Resolved]
  - Decreased appetite [Not Recovered/Not Resolved]
  - Pollakiuria [Not Recovered/Not Resolved]
  - Lacrimation increased [Not Recovered/Not Resolved]
  - Rhinorrhoea [Not Recovered/Not Resolved]
  - Illness [Not Recovered/Not Resolved]
  - Feeling of body temperature change [Unknown]
  - Nasal discomfort [Unknown]
  - Frequent bowel movements [Unknown]
  - Condition aggravated [Unknown]
  - Bone density decreased [Unknown]
  - Muscle spasms [Not Recovered/Not Resolved]
  - Pain [Not Recovered/Not Resolved]
  - Dyspepsia [Not Recovered/Not Resolved]
  - Diarrhoea [Not Recovered/Not Resolved]
  - Nausea [Not Recovered/Not Resolved]
  - Headache [Unknown]

NARRATIVE: CASE EVENT DATE: 20201217
